FAERS Safety Report 6398639-X (Version None)
Quarter: 2009Q4

REPORT INFORMATION
  Report Type: 
  Country: None (occurrence: None)
  Receive Date: 20091013
  Receipt Date: 20091002
  Transmission Date: 20100525
  Serious: Yes (Other)
  Sender: FDA-Public Use
  Company Number: JP-JNJCH-2009025998

PATIENT
  Sex: Female
  Weight: 45 kg

DRUGS (5)
  1. CETIRIZINE HYDROCHLORIDE [Suspect]
     Indication: LARYNGITIS
     Dosage: TEXT:1.6 G
     Route: 048
     Dates: start: 20090919, end: 20090919
  2. TOLBUTAMIDE [Concomitant]
     Indication: DIABETES MELLITUS
     Dosage: TEXT:0.5 G
     Route: 048
     Dates: start: 20090909, end: 20090922
  3. AMBROXOL HYDROCHLORIDE [Concomitant]
     Indication: PRODUCTIVE COUGH
     Dosage: TEXT:45 MG/KG
     Route: 048
     Dates: start: 20090919, end: 20090919
  4. GOSHAJINKIGAN [Concomitant]
     Indication: NEUROPATHY PERIPHERAL
     Dosage: TEXT:7.5 G
     Route: 048
     Dates: start: 20090909, end: 20090922
  5. DEQUALINIUM CHLORIDE [Concomitant]
     Indication: PHARYNGITIS
     Dosage: TEXT:1.6 G
     Route: 048
     Dates: start: 20090919, end: 20090922

REACTIONS (2)
  - DIARRHOEA [None]
  - LOSS OF CONSCIOUSNESS [None]
